FAERS Safety Report 7204683-2 (Version None)
Quarter: 2010Q4

REPORT INFORMATION
  Report Type: 
  Country: None (occurrence: None)
  Receive Date: 20101230
  Receipt Date: 20101222
  Transmission Date: 20110411
  Serious: Yes (Other)
  Sender: FDA-Public Use
  Company Number: US-JNJFOC-20101207836

PATIENT
  Age: 21 Year
  Sex: Female
  Weight: 61.24 kg

DRUGS (3)
  1. TYLENOL COLD MULTI-SYMPTOM SEVERE DAYTIME COOL BURST [Suspect]
     Indication: NASOPHARYNGITIS
     Route: 048
  2. TYLENOL COLD MULTI-SYMPTOM SEVERE DAYTIME COOL BURST [Suspect]
     Indication: NASAL CONGESTION
     Route: 048
  3. FLUTICASONE PROPIONATE [Suspect]
     Indication: NASAL CONGESTION
     Route: 045

REACTIONS (6)
  - ABDOMINAL PAIN [None]
  - EXPIRED DRUG ADMINISTERED [None]
  - PAIN [None]
  - RASH [None]
  - TREMOR [None]
  - URTICARIA [None]
